FAERS Safety Report 16077269 (Version 1)
Quarter: 2019Q1

REPORT INFORMATION
  Report Type: Spontaneous
  Country: JP (occurrence: JP)
  Receive Date: 20190315
  Receipt Date: 20190315
  Transmission Date: 20190418
  Serious: Yes (Other)
  Sender: FDA-Public Use
  Company Number: JP-BAYER-2019-052568

PATIENT
  Age: 8 Year
  Sex: Male
  Weight: 31 kg

DRUGS (6)
  1. CLARITIN [Suspect]
     Active Substance: LORATADINE
     Indication: COUGH
  2. MUCODYNE [Concomitant]
     Active Substance: CARBOCYSTEINE
     Indication: RHINORRHOEA
     Dosage: 250 MG, BID
     Route: 048
     Dates: start: 20181202, end: 20181206
  3. CLARITIN [Suspect]
     Active Substance: LORATADINE
     Indication: RHINORRHOEA
     Dosage: 10 MG, QD
     Route: 048
     Dates: start: 20181202, end: 20181206
  4. XOFLUZA [Suspect]
     Active Substance: BALOXAVIR MARBOXIL
     Indication: INFLUENZA
     Dosage: 20 MG, QD
     Route: 048
     Dates: start: 20181202, end: 20181202
  5. TRANSAMIN [Concomitant]
     Active Substance: TRANEXAMIC ACID
     Indication: OROPHARYNGEAL PAIN
     Dosage: 250 MG, BID
     Route: 048
     Dates: start: 20181202, end: 20181206
  6. MUCODYNE [Concomitant]
     Active Substance: CARBOCYSTEINE
     Indication: COUGH

REACTIONS (1)
  - Tonic convulsion [Recovered/Resolved]

NARRATIVE: CASE EVENT DATE: 20181202
